FAERS Safety Report 4558241-9 (Version None)
Quarter: 2005Q1

REPORT INFORMATION
  Report Type: 
  Country: None (occurrence: None)
  Receive Date: 20050103
  Receipt Date: 20041015
  Transmission Date: 20050727
  Serious: Yes (Other)
  Sender: FDA-Public Use
  Company Number: 2004UW21568

PATIENT
  Age: 60 Year
  Sex: Male

DRUGS (4)
  1. CRESTOR [Suspect]
     Dosage: 10 MG DAILY PO
     Route: 048
  2. ZETIA [Concomitant]
  3. VITAMIN E [Concomitant]
  4. FISH OIL [Concomitant]

REACTIONS (5)
  - FEELING HOT [None]
  - HEPATITIS [None]
  - PETECHIAE [None]
  - URTICARIA [None]
  - VASCULITIS [None]
